FAERS Safety Report 8961019 (Version 2)
Quarter: 2012Q4

REPORT INFORMATION
  Report Type: Report from Study
  Country: DE (occurrence: TR)
  Receive Date: 20121212
  Receipt Date: 20121217
  Transmission Date: 20130627
  Serious: Yes (Death, Hospitalization, Other)
  Sender: FDA-Public Use
  Company Number: DE-ACTELION-A-US2012-76151

PATIENT
  Age: 63 Year
  Sex: Male
  Weight: 80 kg

DRUGS (5)
  1. VENTAVIS [Suspect]
     Indication: PULMONARY HYPERTENSION
     Dosage: UNK ?g, 6x/day
     Route: 055
     Dates: start: 20121031, end: 20121204
  2. OXYGEN [Concomitant]
  3. PULMICORT [Concomitant]
  4. VENTOLIN [Concomitant]
  5. COUMADIN [Concomitant]

REACTIONS (8)
  - Cardiac procedure complication [Fatal]
  - Heart valve operation [Unknown]
  - Procedural haemorrhage [Unknown]
  - Blood pressure decreased [Unknown]
  - Anuria [Unknown]
  - Blood test abnormal [Recovered/Resolved]
  - Tension [Unknown]
  - Cough [Unknown]
